FAERS Safety Report 8507263-1 (Version None)
Quarter: 2012Q3

REPORT INFORMATION
  Report Type: 
  Country: None (occurrence: None)
  Receive Date: 20120712
  Receipt Date: 20120628
  Transmission Date: 20120928
  Serious: Yes (Death, Hospitalization)
  Sender: FDA-Public Use
  Company Number: JP-ROCHE-1072174

PATIENT
  Sex: Female

DRUGS (2)
  1. ACTEMRA [Suspect]
     Indication: RHEUMATOID ARTHRITIS
     Route: 041
     Dates: start: 20011027, end: 20080601
  2. ACTEMRA [Suspect]
     Route: 041
     Dates: start: 20080704, end: 20091127

REACTIONS (4)
  - HEPATIC FAILURE [None]
  - HEPATIC CANCER METASTATIC [None]
  - BILE DUCT CANCER [None]
  - BREAST CANCER [None]
